FAERS Safety Report 8454668-3 (Version None)
Quarter: 2012Q2

REPORT INFORMATION
  Report Type: 
  Country: None (occurrence: None)
  Receive Date: 20120615
  Receipt Date: 20120615
  Transmission Date: 20120825
  Serious: No
  Sender: FDA-Public Use
  Company Number: None

PATIENT

DRUGS (1)
  1. CITALOPRAM HYDROBROMIDE [Suspect]

REACTIONS (9)
  - BLOOD PRESSURE INCREASED [None]
  - PALPITATIONS [None]
  - OEDEMA [None]
  - DRUG HYPERSENSITIVITY [None]
  - HEART RATE IRREGULAR [None]
  - MYOCARDIAL INFARCTION [None]
  - HEART RATE DECREASED [None]
  - CARDIAC DISORDER [None]
  - FATIGUE [None]
